FAERS Safety Report 20914050 (Version 1)
Quarter: 2022Q2

REPORT INFORMATION
  Report Type: Spontaneous
  Country: ES (occurrence: ES)
  Receive Date: 20220604
  Receipt Date: 20220604
  Transmission Date: 20220720
  Serious: Yes (Hospitalization)
  Sender: FDA-Public Use
  Company Number: None

PATIENT
  Age: 58 Year
  Sex: Female

DRUGS (7)
  1. ACETAMINOPHEN [Suspect]
     Active Substance: ACETAMINOPHEN
     Indication: Pain
     Dosage: 2 G
     Route: 041
     Dates: start: 20220221, end: 20220221
  2. OMEPRAZOLE [Suspect]
     Active Substance: OMEPRAZOLE
     Indication: Prophylaxis against gastrointestinal ulcer
     Dosage: 20 MG, ONCE/SINGLE
     Route: 048
     Dates: start: 20220221, end: 20220221
  3. CEFUROXIME [Suspect]
     Active Substance: CEFUROXIME
     Indication: Antibiotic prophylaxis
     Dosage: 1.5 G, ONCE/SINGLE
     Route: 041
     Dates: start: 20220221, end: 20220221
  4. DEXKETOPROFEN [Suspect]
     Active Substance: DEXKETOPROFEN
     Indication: Pain
     Dosage: 100 MG, ONCE/SINGLE
     Route: 048
     Dates: start: 20220222, end: 20220222
  5. ENOXAPARIN SODIUM [Suspect]
     Active Substance: ENOXAPARIN SODIUM
     Indication: Vascular disorder prophylaxis
     Dosage: 40 MG
     Route: 058
     Dates: start: 20220221, end: 20220224
  6. ACETAMINOPHEN [Concomitant]
     Active Substance: ACETAMINOPHEN
     Indication: Pain
     Dosage: 1 G (CAMBIO EL 21/02/2022 A V?A INTRAVENOSA 2G TOTAL)
     Route: 048
     Dates: start: 20220220, end: 20220220
  7. ACETAMINOPHEN [Concomitant]
     Active Substance: ACETAMINOPHEN
     Dosage: 1 G (CAMBIO EL 21/02/2022 A V?A INTRAVENOSA 2G TOTAL)
     Route: 048
     Dates: start: 20220220, end: 20220220

REACTIONS (2)
  - Hyperbilirubinaemia [Recovered/Resolved]
  - Hepatic cytolysis [Recovered/Resolved]

NARRATIVE: CASE EVENT DATE: 20220223
